FAERS Safety Report 18615431 (Version 2)
Quarter: 2022Q2

REPORT INFORMATION
  Report Type: Spontaneous
  Country: JP (occurrence: JP)
  Receive Date: 20201214
  Receipt Date: 20220526
  Transmission Date: 20220721
  Serious: Yes (Other)
  Sender: FDA-Public Use
  Company Number: JP-BOEHRINGERINGELHEIM-2020-BI-067397

PATIENT
  Age: 48 Year
  Sex: Male

DRUGS (12)
  1. VIRAMUNE [Suspect]
     Active Substance: NEVIRAPINE
     Indication: HIV infection
     Route: 048
     Dates: start: 19990826, end: 19990919
  2. VIRAMUNE [Suspect]
     Active Substance: NEVIRAPINE
     Dosage: #2
     Route: 048
     Dates: start: 19990920, end: 20030522
  3. TENOFOVIR DISOPROXIL FUMARATE [Suspect]
     Active Substance: TENOFOVIR DISOPROXIL FUMARATE
     Indication: HIV infection
     Dosage: 300 MG, QD
     Route: 048
     Dates: start: 20030523, end: 20111124
  4. TENOFOVIR DISOPROXIL FUMARATE [Suspect]
     Active Substance: TENOFOVIR DISOPROXIL FUMARATE
  5. ZERIT [Suspect]
     Active Substance: STAVUDINE
     Indication: HIV infection
     Dosage: #1
     Route: 048
     Dates: start: 19990826, end: 20020522
  6. VIDEX [Suspect]
     Active Substance: DIDANOSINE
     Indication: HIV infection
     Dosage: #1
     Route: 048
     Dates: start: 20010401, end: 20020522
  7. COMBIVIR [Suspect]
     Active Substance: LAMIVUDINE\ZIDOVUDINE
     Indication: HIV infection
     Dosage: 2 DOSAGE FORM
     Route: 065
     Dates: start: 20020523, end: 20030522
  8. COMBIVIR [Suspect]
     Active Substance: LAMIVUDINE\ZIDOVUDINE
     Dosage: 2 DOSAGE FORM
     Dates: start: 20090401, end: 20111124
  9. KALETRA [Suspect]
     Active Substance: LOPINAVIR\RITONAVIR
     Indication: HIV infection
     Dosage: 2 DOSAGE FORM
     Route: 065
     Dates: start: 20030523, end: 20061120
  10. KALETRA [Suspect]
     Active Substance: LOPINAVIR\RITONAVIR
     Dosage: 2 DOSAGE FORM
     Dates: start: 20061121, end: 20100603
  11. BEZAFIBRATE [Suspect]
     Active Substance: BEZAFIBRATE
     Indication: Hypertriglyceridaemia
     Route: 065
     Dates: start: 20060626, end: 20110610
  12. RETROVIR [Concomitant]
     Active Substance: ZIDOVUDINE
     Indication: Product used for unknown indication
     Dates: start: 20030523, end: 20090401

REACTIONS (3)
  - Lipodystrophy acquired [Unknown]
  - Diarrhoea [Unknown]
  - Hepatic function abnormal [Unknown]

NARRATIVE: CASE EVENT DATE: 20100101
